FAERS Safety Report 25278718 (Version 1)
Quarter: 2025Q2

REPORT INFORMATION
  Report Type: Spontaneous
  Country: GB (occurrence: GB)
  Receive Date: 20250507
  Receipt Date: 20250507
  Transmission Date: 20250717
  Serious: Yes (Life-Threatening)
  Sender: CHATTEM
  Company Number: None

PATIENT
  Age: 60 Year
  Sex: Female
  Weight: 55 kg

DRUGS (2)
  1. FEXOFENADINE [Suspect]
     Active Substance: FEXOFENADINE HYDROCHLORIDE
     Indication: Sinus headache
     Route: 065
  2. IRON [Concomitant]
     Active Substance: IRON
     Indication: Anaemia

REACTIONS (1)
  - Bradyphrenia [Recovered/Resolved]
